FAERS Safety Report 9069571 (Version 1)
Quarter: 2013Q1

REPORT INFORMATION
  Report Type: Report from Study
  Country: US (occurrence: US)
  Receive Date: 20130131
  Receipt Date: 20130131
  Transmission Date: 20140127
  Serious: No
  Sender: FDA-Public Use
  Company Number: US-ABBOTT-12P-163-1000927-00

PATIENT
  Age: 22 Year
  Sex: Female

DRUGS (5)
  1. HUMIRA [Suspect]
     Indication: ANKYLOSING SPONDYLITIS
     Route: 058
     Dates: start: 20121024
  2. CURCUMIN [Concomitant]
     Indication: ANTIINFLAMMATORY THERAPY
  3. BROMELAIN [Concomitant]
     Indication: ANTIINFLAMMATORY THERAPY
  4. VALERIAN [Concomitant]
     Indication: ANTIINFLAMMATORY THERAPY
  5. DEVIL^S CLAW [Concomitant]
     Indication: ANTIINFLAMMATORY THERAPY

REACTIONS (1)
  - Drug ineffective [Not Recovered/Not Resolved]
